FAERS Safety Report 22078934 (Version 1)
Quarter: 2023Q1

REPORT INFORMATION
  Report Type: Spontaneous
  Country: FR (occurrence: FR)
  Receive Date: 20230309
  Receipt Date: 20230309
  Transmission Date: 20230418
  Serious: No
  Sender: FDA-Public Use
  Company Number: FR-PFIZER INC-202300086761

PATIENT
  Age: 30 Year
  Sex: Female

DRUGS (2)
  1. ADALIMUMAB [Suspect]
     Active Substance: ADALIMUMAB
     Dosage: UNK
     Dates: start: 202301
  2. ADALIMUMAB [Suspect]
     Active Substance: ADALIMUMAB
     Dosage: 1 DF, EVERY 2 WEEKS

REACTIONS (4)
  - Device defective [Unknown]
  - Needle issue [Unknown]
  - Injection site pain [Unknown]
  - Drug dose omission by device [Unknown]

NARRATIVE: CASE EVENT DATE: 20230227
